FAERS Safety Report 5005912-6 (Version None)
Quarter: 2006Q2

REPORT INFORMATION
  Report Type: 
  Country: None (occurrence: None)
  Receive Date: 20060517
  Receipt Date: 20060517
  Transmission Date: 20061013
  Serious: No
  Sender: FDA-Public Use
  Company Number: None

PATIENT
  Sex: Male
  Weight: 74 kg

DRUGS (19)
  1. DOBUTAMINE HCL [Suspect]
     Indication: CARDIAC FAILURE CONGESTIVE
     Dosage: 3 MICROGRAM/KG/MIN  CONTINUOUS IV
     Route: 042
     Dates: start: 20060126, end: 20060201
  2. DOBUTAMINE HCL [Suspect]
     Indication: CARDIAC FAILURE CONGESTIVE
     Dosage: 3 MICROGRAM/KG/MIN  CONTINUOUS IV
     Route: 042
     Dates: start: 20060313, end: 20060315
  3. INSULIN INSULATARD NPH NORDISK [Concomitant]
  4. HUMALOG [Concomitant]
  5. STARLIX [Concomitant]
  6. PROTONIX [Concomitant]
  7. RENAGEL [Concomitant]
  8. ZOCOR [Concomitant]
  9. FLOMAX [Concomitant]
  10. BUMEX [Concomitant]
  11. K-DUR 10 [Concomitant]
  12. HYDRALAZINE HCL [Concomitant]
  13. ZAROXOLYN [Concomitant]
  14. COREG [Concomitant]
  15. ALBUTEROL SULFATE AUTOHALER [Concomitant]
  16. PHOSLO [Concomitant]
  17. PROSCAR [Concomitant]
  18. DOCUSATE [Concomitant]
  19. EPOETIN [Concomitant]

REACTIONS (5)
  - ABNORMAL BEHAVIOUR [None]
  - DIFFICULTY IN WALKING [None]
  - DYSKINESIA [None]
  - MYOCLONUS [None]
  - PSYCHOMOTOR HYPERACTIVITY [None]
